FAERS Safety Report 16781746 (Version 1)
Quarter: 2019Q3

REPORT INFORMATION
  Report Type: Spontaneous
  Country: IN (occurrence: IN)
  Receive Date: 20190906
  Receipt Date: 20190906
  Transmission Date: 20191005
  Serious: Yes (Other)
  Sender: FDA-Public Use
  Company Number: IN-ROCHE-2395131

PATIENT
  Age: 62 Year
  Sex: Female

DRUGS (2)
  1. TYKERB [Concomitant]
     Active Substance: LAPATINIB DITOSYLATE
  2. XELODA [Suspect]
     Active Substance: CAPECITABINE
     Indication: BREAST CANCER
     Route: 048

REACTIONS (1)
  - Neoplasm skin [Unknown]
